FAERS Safety Report 18021537 (Version 10)
Quarter: 2021Q3

REPORT INFORMATION
  Report Type: Report from Study
  Country: None (occurrence: NL)
  Receive Date: 20200715
  Receipt Date: 20210809
  Transmission Date: 20211014
  Serious: Yes (Hospitalization)
  Sender: FDA-Public Use
  Company Number: NL-ABBVIE-20K-114-3280051-00

PATIENT
  Age: 67 Year
  Sex: Female

DRUGS (11)
  1. DUODOPA [Suspect]
     Active Substance: CARBIDOPA\LEVODOPA
     Dosage: MD: 13.5 ML, CD: 4.1 ML/H, ED: 4.0 ML
     Route: 050
  2. MUCOPERM [Concomitant]
     Indication: BOWEL MOVEMENT IRREGULARITY
  3. DUODOPA [Suspect]
     Active Substance: CARBIDOPA\LEVODOPA
     Indication: PARKINSON^S DISEASE
     Dosage: MD: 13.5, CD: 3.2, ED: 3.0
     Route: 050
     Dates: start: 20200106, end: 2020
  4. DOMPERIDONE [Concomitant]
     Active Substance: DOMPERIDONE
     Indication: PRODUCT USED FOR UNKNOWN INDICATION
  5. DUODOPA [Suspect]
     Active Substance: CARBIDOPA\LEVODOPA
     Dosage: MD: 13.5, CD: 3.6, ED: 3.0, REMAINS AT 16 HOURS
     Route: 050
     Dates: start: 2020
  6. DUODOPA [Suspect]
     Active Substance: CARBIDOPA\LEVODOPA
     Dosage: MD: 13.5 ML, CD: 3.8 ML/H, ED: 3.0 ML
     Route: 050
  7. SIFROL [Suspect]
     Active Substance: PRAMIPEXOLE
     Indication: PRODUCT USED FOR UNKNOWN INDICATION
     Dosage: TAPERING SCHEDULE, UNIT DOSE: 0.357 MG
     Route: 065
  8. DUODOPA [Suspect]
     Active Substance: CARBIDOPA\LEVODOPA
     Dosage: MD: 13.5, CD: 3.4, ED: 3.5?REMAINS AT 16 HOURS
     Route: 050
     Dates: start: 2020, end: 2020
  9. MADOPAR RET [Concomitant]
     Indication: PRODUCT USED FOR UNKNOWN INDICATION
  10. DUODOPA [Suspect]
     Active Substance: CARBIDOPA\LEVODOPA
     Dosage: MD: 13.5, CD: 3.4, ED: 3.0?20 MG/ML 5 MG/ML?REMAINS AT 16 HOURS
     Route: 050
     Dates: start: 2020, end: 2020
  11. DUODOPA [Suspect]
     Active Substance: CARBIDOPA\LEVODOPA
     Dosage: CD: 4.0
     Route: 050

REACTIONS (69)
  - Fibroma [Not Recovered/Not Resolved]
  - Limb discomfort [Not Recovered/Not Resolved]
  - Gait disturbance [Not Recovered/Not Resolved]
  - Abnormal dreams [Not Recovered/Not Resolved]
  - Therapeutic product effect incomplete [Not Recovered/Not Resolved]
  - Poor quality sleep [Not Recovered/Not Resolved]
  - Memory impairment [Not Recovered/Not Resolved]
  - Nocturia [Not Recovered/Not Resolved]
  - General physical health deterioration [Not Recovered/Not Resolved]
  - Balance disorder [Not Recovered/Not Resolved]
  - Coronavirus infection [Unknown]
  - Muscle rigidity [Not Recovered/Not Resolved]
  - Dystonia [Not Recovered/Not Resolved]
  - Abdominal discomfort [Not Recovered/Not Resolved]
  - Dyskinesia [Not Recovered/Not Resolved]
  - Insomnia [Not Recovered/Not Resolved]
  - Device fastener issue [Recovered/Resolved]
  - Extra dose administered [Recovering/Resolving]
  - Dyspnoea [Not Recovered/Not Resolved]
  - Device dislocation [Unknown]
  - Dizziness [Unknown]
  - Unevaluable event [Not Recovered/Not Resolved]
  - Stoma site haemorrhage [Not Recovered/Not Resolved]
  - Complication associated with device [Unknown]
  - Tension [Not Recovered/Not Resolved]
  - Muscle spasms [Not Recovered/Not Resolved]
  - Malaise [Not Recovered/Not Resolved]
  - Asthenia [Not Recovered/Not Resolved]
  - Fear [Unknown]
  - Therapeutic product effect decreased [Not Recovered/Not Resolved]
  - Middle insomnia [Not Recovered/Not Resolved]
  - Adverse drug reaction [Unknown]
  - Inappropriate schedule of product administration [Not Recovered/Not Resolved]
  - Device alarm issue [Unknown]
  - Complication associated with device [Not Recovered/Not Resolved]
  - Pollakiuria [Not Recovered/Not Resolved]
  - Fatigue [Not Recovered/Not Resolved]
  - Nausea [Not Recovered/Not Resolved]
  - Stoma site discharge [Not Recovered/Not Resolved]
  - On and off phenomenon [Not Recovered/Not Resolved]
  - Device issue [Unknown]
  - Stoma site inflammation [Recovered/Resolved]
  - Joint stiffness [Not Recovered/Not Resolved]
  - Musculoskeletal stiffness [Not Recovered/Not Resolved]
  - Oedema peripheral [Not Recovered/Not Resolved]
  - Impaired quality of life [Unknown]
  - Malaise [Recovered/Resolved]
  - Stoma site reaction [Recovered/Resolved]
  - Speech disorder [Not Recovered/Not Resolved]
  - Hyperphagia [Recovered/Resolved]
  - Dysgeusia [Recovering/Resolving]
  - Paraesthesia [Unknown]
  - Headache [Not Recovered/Not Resolved]
  - Therapeutic product effect variable [Not Recovered/Not Resolved]
  - Sleep disorder [Not Recovered/Not Resolved]
  - Bone contusion [Not Recovered/Not Resolved]
  - Fall [Recovered/Resolved]
  - Loss of personal independence in daily activities [Not Recovered/Not Resolved]
  - Erysipelas [Recovered/Resolved]
  - Mobility decreased [Not Recovered/Not Resolved]
  - Chills [Not Recovered/Not Resolved]
  - Throat tightness [Not Recovered/Not Resolved]
  - Muscle spasms [Unknown]
  - Tremor [Not Recovered/Not Resolved]
  - Therapeutic product effect incomplete [Recovered/Resolved]
  - Stoma site irritation [Recovered/Resolved]
  - Stoma complication [Recovered/Resolved]
  - Stoma site erythema [Recovered/Resolved]
  - Stoma site haemorrhage [Recovered/Resolved]

NARRATIVE: CASE EVENT DATE: 2020
